FAERS Safety Report 10006474 (Version 1)
Quarter: 2014Q1

REPORT INFORMATION
  Report Type: Spontaneous
  Country: US (occurrence: US)
  Receive Date: 20140313
  Receipt Date: 20140313
  Transmission Date: 20141002
  Serious: No
  Sender: FDA-Public Use
  Company Number: US-009507513-1402USA013259

PATIENT
  Age: 47 Year
  Sex: Female

DRUGS (5)
  1. CORICIDIN HBP COLD AND FLU [Suspect]
     Indication: PYREXIA
     Dosage: UNK, UNKNOWN
     Route: 048
  2. CORICIDIN HBP COLD AND FLU [Suspect]
     Indication: SNEEZING
  3. CORICIDIN HBP COLD AND FLU [Suspect]
     Indication: COUGH
  4. CORICIDIN HBP COLD AND FLU [Suspect]
     Indication: RHINORRHOEA
  5. WARFARIN [Concomitant]
     Indication: PRODUCT USED FOR UNKNOWN INDICATION
     Dosage: UNK, UNKNOWN

REACTIONS (1)
  - Drug ineffective [Unknown]
